FAERS Safety Report 9355410 (Version 1)
Quarter: 2013Q2

REPORT INFORMATION
  Report Type: Spontaneous
  Country: US (occurrence: US)
  Receive Date: 20130619
  Receipt Date: 20130619
  Transmission Date: 20140414
  Serious: Yes (Hospitalization)
  Sender: FDA-Public Use
  Company Number: US-ROCHE-1238398

PATIENT
  Sex: Female

DRUGS (1)
  1. XELODA [Suspect]
     Indication: PRODUCT USED FOR UNKNOWN INDICATION
     Route: 065
     Dates: start: 201207, end: 201301

REACTIONS (3)
  - Jaundice [Unknown]
  - Bile duct obstruction [Unknown]
  - Drug ineffective [Unknown]
